FAERS Safety Report 22829274 (Version 4)
Quarter: 2024Q3

REPORT INFORMATION
  Report Type: Spontaneous
  Country: CA (occurrence: CA)
  Receive Date: 20230816
  Receipt Date: 20240827
  Transmission Date: 20241017
  Serious: Yes (Other)
  Sender: PFIZER
  Company Number: CA-PFIZER INC-202201374457

PATIENT
  Age: 30 Year
  Sex: Female
  Weight: 136 kg

DRUGS (3)
  1. ABRILADA [Suspect]
     Active Substance: ADALIMUMAB-AFZB
     Indication: Crohn^s disease
     Dosage: 1 DF, 160MG WEEK 0, 80MG WEEK 2, THEN 40MG EVERY 2 WEEKS - PREFILLED PEN
     Route: 058
     Dates: start: 20221129
  2. ABRILADA [Suspect]
     Active Substance: ADALIMUMAB-AFZB
     Dosage: 1 DF, 160MG WEEK 0, 80MG WEEK 2, THEN 40MG EVERY 2 WEEKS - PREFILLED PEN
     Route: 058
     Dates: start: 20221129, end: 2023
  3. ABRILADA [Suspect]
     Active Substance: ADALIMUMAB-AFZB
     Dosage: 40 MG WEEKLY
     Route: 058
     Dates: start: 202309

REACTIONS (6)
  - Faecal calprotectin increased [Unknown]
  - Pilonidal disease [Not Recovered/Not Resolved]
  - Abscess [Not Recovered/Not Resolved]
  - Condition aggravated [Not Recovered/Not Resolved]
  - Off label use [Unknown]
  - Off label use [Unknown]

NARRATIVE: CASE EVENT DATE: 20220101
